FAERS Safety Report 25295398 (Version 1)
Quarter: 2025Q2

REPORT INFORMATION
  Report Type: Spontaneous
  Country: US (occurrence: US)
  Receive Date: 20250511
  Receipt Date: 20250511
  Transmission Date: 20250716
  Serious: No
  Sender: SANOFI AVENTIS
  Company Number: US-SANOFI-02508417

PATIENT

DRUGS (3)
  1. DUPIXENT [Suspect]
     Active Substance: DUPILUMAB
     Indication: Dermatitis atopic
     Dosage: 300 MG, Q4W
     Route: 065
  2. LIDOCAINE [Concomitant]
     Active Substance: LIDOCAINE
  3. DEVICE\POLYURETHANE [Concomitant]
     Active Substance: DEVICE\POLYURETHANE

REACTIONS (3)
  - Skin swelling [Unknown]
  - Skin weeping [Unknown]
  - Injection site erythema [Unknown]
